FAERS Safety Report 6382074-4 (Version None)
Quarter: 2009Q3

REPORT INFORMATION
  Report Type: 
  Country: None (occurrence: None)
  Receive Date: 20090925
  Receipt Date: 20090917
  Transmission Date: 20100115
  Serious: Yes (Death, Hospitalization)
  Sender: FDA-Public Use
  Company Number: CLOF-1000703

PATIENT
  Age: 60 Year
  Sex: Male

DRUGS (54)
  1. CLOLAR [Suspect]
     Indication: ACUTE MYELOID LEUKAEMIA
     Dosage: 25 MG/M2, QDX5, INTRAVENOUS ; 25 MG/M2, QDX4, INTRAVENOS
     Route: 042
     Dates: start: 20090626, end: 20090630
  2. CLOLAR [Suspect]
     Indication: ACUTE MYELOID LEUKAEMIA
     Dosage: 25 MG/M2, QDX5, INTRAVENOUS ; 25 MG/M2, QDX4, INTRAVENOS
     Route: 042
     Dates: start: 20090811, end: 20090814
  3. CYTARABINE [Suspect]
     Indication: ACUTE MYELOID LEUKAEMIA
     Dates: start: 20090601, end: 20090601
  4. ALBUTEROL (SALBUTAMOL SULFATE) [Concomitant]
  5. ATROVENT [Concomitant]
  6. DIPHENHYDRAMINE HCL [Concomitant]
  7. FENTANYL-100 [Concomitant]
  8. LORAZEPAM [Concomitant]
  9. MIDAZOLAM HCL [Concomitant]
  10. SODIUM CHLORIDE 0.9% [Concomitant]
  11. ALBUMIN HUMAN (ALBUMIN) [Concomitant]
  12. POTASSIUM CHLORIDE [Concomitant]
  13. OXYCODONE HCL [Concomitant]
  14. PROCHLORPERAZINE MALEATE [Concomitant]
  15. HYDROXYZINE [Concomitant]
  16. HYDROMORPHONE HCL [Concomitant]
  17. BACITRACIN [Concomitant]
  18. LEVETIRACETAM [Concomitant]
  19. LEVOTHYROXINE SODIUM [Concomitant]
  20. MEROPENEM [Concomitant]
  21. ACYCLOVIR [Concomitant]
  22. CEFTRIAXONE [Concomitant]
  23. FILGRASTIM (FILGRASTIM) [Concomitant]
  24. MICAFUNGIN (MICAFUNGIN) [Concomitant]
  25. PANTOPRAZOLE SODIUM [Concomitant]
  26. VANCOMYCIN [Concomitant]
  27. VORICONAZOLE [Concomitant]
  28. METOPROLOL (METOPROLOL) [Concomitant]
  29. COCAINE (COCAINE) [Concomitant]
  30. CHLORIDE (CHLORIDE) [Concomitant]
  31. CILASTATIN SODIUM W (CILASTATIN SODIUM, IMIPENEM) [Concomitant]
  32. CALCIUM ACETATE (CALCIUM ACETATE) [Concomitant]
  33. GLUCONATE SODIUM (GLUCONATE SODIUM) [Concomitant]
  34. DEXTROSE [Concomitant]
  35. FUROSEMIDE [Concomitant]
  36. MAGNESIUM SULFATE [Concomitant]
  37. BACTRIM [Concomitant]
  38. ALTEPLASE (ALTEPLASE) [Concomitant]
  39. ALLOPURINOL [Concomitant]
  40. LIDOCAINE [Concomitant]
  41. HYOSCINE HBR HYT [Concomitant]
  42. CARVEDILOL [Concomitant]
  43. PREDNISOLONE [Concomitant]
  44. SIMVASTATIN [Concomitant]
  45. ONDANSETRON [Concomitant]
  46. AMBISOME [Concomitant]
  47. DEXAMETHASONE TAB [Concomitant]
  48. SPIRONOLACTONE [Concomitant]
  49. MULTIVITAMIN [Concomitant]
  50. CEFTAZIDIME [Concomitant]
  51. POSACONAZOLE [Concomitant]
  52. CALCIUM CARBONATE [Concomitant]
  53. MORPHINE [Concomitant]
  54. LISINOPRIL [Concomitant]

REACTIONS (5)
  - ASPERGILLOSIS [None]
  - GASTROINTESTINAL HAEMORRHAGE [None]
  - NOCARDIOSIS [None]
  - RENAL TUBULAR NECROSIS [None]
  - SMALL INTESTINAL OBSTRUCTION [None]
